FAERS Safety Report 13895338 (Version 2)
Quarter: 2017Q3

REPORT INFORMATION
  Report Type: Report from Study
  Country: US (occurrence: US)
  Receive Date: 20170823
  Receipt Date: 20170828
  Transmission Date: 20171127
  Serious: Yes (Death, Hospitalization)
  Sender: FDA-Public Use
  Company Number: US-ROCHE-1982721

PATIENT
  Age: 100 Year
  Sex: Male
  Weight: 61.74 kg

DRUGS (1)
  1. ERIVEDGE [Suspect]
     Active Substance: VISMODEGIB
     Indication: BASAL CELL CARCINOMA
     Route: 048

REACTIONS (4)
  - Renal failure [Unknown]
  - Myocardial infarction [Unknown]
  - Death [Fatal]
  - Eye pain [Recovering/Resolving]

NARRATIVE: CASE EVENT DATE: 20170823
